FAERS Safety Report 17724368 (Version 1)
Quarter: 2020Q2

REPORT INFORMATION
  Report Type: Spontaneous
  Country: FR (occurrence: FR)
  Receive Date: 20200429
  Receipt Date: 20200429
  Transmission Date: 20200714
  Serious: Yes (Death, Other)
  Sender: FDA-Public Use
  Company Number: FR-JNJFOC-20200433502

PATIENT

DRUGS (6)
  1. DARUNAVIR [Suspect]
     Active Substance: DARUNAVIR
     Indication: BEHAVIOUR DISORDER
     Route: 048
  2. HYDROXYCHLOROQUINE [Concomitant]
     Active Substance: HYDROXYCHLOROQUINE
     Indication: CORONAVIRUS INFECTION
     Route: 065
  3. METOCLOPRAMIDE. [Concomitant]
     Active Substance: METOCLOPRAMIDE
     Indication: CORONAVIRUS INFECTION
     Route: 065
  4. AZITHROMYCINE [Concomitant]
     Active Substance: AZITHROMYCIN
     Indication: CORONAVIRUS INFECTION
     Route: 065
  5. LEVOFLOXACIN. [Concomitant]
     Active Substance: LEVOFLOXACIN
     Indication: CORONAVIRUS INFECTION
     Route: 065
  6. RITONAVIR. [Concomitant]
     Active Substance: RITONAVIR
     Indication: CORONAVIRUS INFECTION
     Route: 065

REACTIONS (4)
  - Cardiac disorder [Fatal]
  - Off label use [Unknown]
  - Product use in unapproved indication [Unknown]
  - Coronavirus infection [Unknown]
